FAERS Safety Report 13844456 (Version 2)
Quarter: 2018Q1

REPORT INFORMATION
  Report Type: Report from Study
  Country: None (occurrence: CA)
  Receive Date: 20170808
  Receipt Date: 20180124
  Transmission Date: 20180508
  Serious: Yes (Hospitalization)
  Sender: FDA-Public Use
  Company Number: CA-ABBVIE-17K-028-2060111-00

PATIENT
  Age: 32 Year
  Sex: Female

DRUGS (1)
  1. HUMIRA [Suspect]
     Active Substance: ADALIMUMAB
     Indication: CROHN^S DISEASE
     Route: 058
     Dates: start: 20120620, end: 201710

REACTIONS (7)
  - Placenta praevia [Not Recovered/Not Resolved]
  - Haematochezia [Unknown]
  - Pain [Unknown]
  - Pyrexia [Unknown]
  - Exposure during pregnancy [Unknown]
  - Inappropriate schedule of drug administration [Recovered/Resolved]
  - Mucous stools [Unknown]

NARRATIVE: CASE EVENT DATE: 2017
